FAERS Safety Report 10205380 (Version 1)
Quarter: 2014Q2

REPORT INFORMATION
  Report Type: Spontaneous
  Country: US (occurrence: US)
  Receive Date: 20140529
  Receipt Date: 20140529
  Transmission Date: 20141212
  Serious: No
  Sender: FDA-Public Use
  Company Number: US-SA-2014SA046144

PATIENT
  Age: 44 Year
  Sex: Female

DRUGS (3)
  1. LANTUS SOLOSTAR [Suspect]
     Indication: TYPE 2 DIABETES MELLITUS
     Route: 065
  2. APIDRA SOLOSTAR [Suspect]
     Indication: PRODUCT USED FOR UNKNOWN INDICATION
     Route: 065
  3. SOLOSTAR [Concomitant]

REACTIONS (2)
  - Visual impairment [Unknown]
  - Condition aggravated [Unknown]
